FAERS Safety Report 8605625-5 (Version None)
Quarter: 2012Q3

REPORT INFORMATION
  Report Type: 
  Country: None (occurrence: None)
  Receive Date: 20120820
  Receipt Date: 20120808
  Transmission Date: 20120928
  Serious: Yes (Other)
  Sender: FDA-Public Use
  Company Number: IT-TEVA-352872ISR

PATIENT
  Sex: Female

DRUGS (3)
  1. ACYCLOVIR [Suspect]
     Dosage: 2400 MILLIGRAM DAILY;
     Route: 048
     Dates: start: 20120627, end: 20120627
  2. ASPIRIN [Suspect]
     Dosage: 2500 MILLIGRAM DAILY;
     Route: 048
     Dates: start: 20120627, end: 20120627
  3. MINIAS [Suspect]
     Dosage: EXACT DROP NUMBER TAKEN IS UNKNOWN
     Route: 048
     Dates: start: 20120627, end: 20120627

REACTIONS (2)
  - MENTAL DISORDER [None]
  - SUICIDAL BEHAVIOUR [None]
